FAERS Safety Report 15384834 (Version 1)
Quarter: 2018Q3

REPORT INFORMATION
  Report Type: Spontaneous
  Country: US (occurrence: US)
  Receive Date: 20180907
  Receipt Date: 20180907
  Transmission Date: 20181010
  Serious: No
  Sender: FDA-Public Use
  Company Number: None

PATIENT
  Age: 46 Year
  Sex: Female

DRUGS (1)
  1. ENBREL [Suspect]
     Active Substance: ETANERCEPT
     Indication: RHEUMATOID ARTHRITIS
     Dosage: 50MG SUBCUTANEOUSLY ONCE WEEKLY USING THE AUTO TOUCH DEVICE AS DIRECTED
     Route: 058
     Dates: start: 201805

REACTIONS (3)
  - Dry mouth [None]
  - Thirst [None]
  - Somnolence [None]
